FAERS Safety Report 9284872 (Version 1)
Quarter: 2013Q2

REPORT INFORMATION
  Report Type: Spontaneous
  Country: CN (occurrence: CN)
  Receive Date: 20130513
  Receipt Date: 20130513
  Transmission Date: 20140414
  Serious: Yes (Hospitalization)
  Sender: FDA-Public Use
  Company Number: CN-ABBOTT-13X-035-1087885-00

PATIENT
  Age: 69 Year
  Sex: Male

DRUGS (1)
  1. DEPAKINE [Suspect]
     Indication: EPILEPSY
     Route: 048
     Dates: start: 20120624, end: 20120627

REACTIONS (3)
  - Blister [Recovering/Resolving]
  - Rash vesicular [Recovering/Resolving]
  - Secretion discharge [Recovering/Resolving]
